FAERS Safety Report 25934636 (Version 1)
Quarter: 2025Q4

REPORT INFORMATION
  Report Type: Spontaneous
  Country: US (occurrence: None)
  Receive Date: 20251016
  Receipt Date: 20251016
  Transmission Date: 20260117
  Serious: Yes (Hospitalization, Disabling, Other)
  Sender: FDA-CTU
  Company Number: None

PATIENT
  Age: 27 Year
  Sex: Female
  Weight: 108 kg

DRUGS (1)
  1. HERBALS\MITRAGYNINE [Suspect]
     Active Substance: HERBALS\MITRAGYNINE
     Route: 048

REACTIONS (13)
  - Cough [None]
  - Dyspnoea [None]
  - Pruritus [None]
  - Insomnia [None]
  - Epistaxis [None]
  - Product residue present [None]
  - Nasal congestion [None]
  - Pharyngeal swelling [None]
  - Throat tightness [None]
  - Pneumonia [None]
  - Muscular weakness [None]
  - Tremor [None]
  - Accidental exposure to product [None]

NARRATIVE: CASE EVENT DATE: 20250301
